FAERS Safety Report 25777125 (Version 2)
Quarter: 2025Q3

REPORT INFORMATION
  Report Type: Spontaneous
  Country: US (occurrence: US)
  Receive Date: 20250909
  Receipt Date: 20250911
  Transmission Date: 20251021
  Serious: Yes (Death, Other)
  Sender: BRISTOL-MYERS SQUIBB COMPANY
  Company Number: US-BRISTOL-MYERS SQUIBB COMPANY-2025-124009

PATIENT
  Sex: Male

DRUGS (2)
  1. YERVOY [Suspect]
     Active Substance: IPILIMUMAB
     Indication: Melanoma recurrent
  2. OPDIVO [Suspect]
     Active Substance: NIVOLUMAB
     Indication: Melanoma recurrent

REACTIONS (1)
  - Death [Fatal]

NARRATIVE: CASE EVENT DATE: 20250327
